FAERS Safety Report 6251995-5 (Version None)
Quarter: 2009Q2

REPORT INFORMATION
  Report Type: 
  Country: None (occurrence: None)
  Receive Date: 20090629
  Receipt Date: 20090617
  Transmission Date: 20091009
  Serious: Yes (Hospitalization)
  Sender: FDA-Public Use
  Company Number: 1-18884538

PATIENT

DRUGS (2)
  1. IBUPROFEN (UNKNOWN MANUFACTURER) [Suspect]
     Dosage: 10,5,5MG/KG Q 24 HR
  2. HUMAN ALBUMIN 20% [Concomitant]

REACTIONS (4)
  - BLOOD BILIRUBIN INCREASED [None]
  - NEURODEVELOPMENTAL DISORDER [None]
  - PAROXYSMAL PERCEPTUAL ALTERATION [None]
  - SPEECH DISORDER DEVELOPMENTAL [None]
